FAERS Safety Report 9359335 (Version 2)
Quarter: 2013Q2

REPORT INFORMATION
  Report Type: Spontaneous
  Country: GB (occurrence: None)
  Receive Date: 20130618
  Receipt Date: 20130628
  Transmission Date: 20140414
  Serious: Yes (Other)
  Sender: FDA-Public Use
  Company Number: AUR-APL-2013-04829

PATIENT
  Age: 70 Year
  Sex: Male
  Weight: 72.5 kg

DRUGS (5)
  1. SIMVASTATIN [Suspect]
     Indication: LOW DENSITY LIPOPROTEIN INCREASED
     Route: 048
     Dates: start: 20120928, end: 20130317
  2. ATORVASTATIN (ATORVASTATIN) [Suspect]
     Indication: LOW DENSITY LIPOPROTEIN INCREASED
     Route: 048
     Dates: start: 20130317, end: 20130517
  3. AMLODIPINE (AMLODIPINE) [Concomitant]
  4. DOXAZOSIN MESILATE (DOXAZOSIN MESILATE) [Concomitant]
  5. OMEPRAZOLE (OMEPRAZOLE) [Concomitant]

REACTIONS (5)
  - Neuralgia [None]
  - Neuralgia [None]
  - Contusion [None]
  - Myalgia [None]
  - Muscle spasms [None]
